FAERS Safety Report 9002798 (Version 2)
Quarter: 2013Q2

REPORT INFORMATION
  Report Type: Spontaneous
  Country: US (occurrence: None)
  Receive Date: 20120508
  Receipt Date: 20120709
  Transmission Date: 20140414
  Serious: Yes (Other)
  Sender: FDA-Public Use
  Company Number: 2012HGS-003216

PATIENT
  Age: 59 Year
  Sex: Female
  Weight: 49.9 kg

DRUGS (15)
  1. BENLYSTA [Suspect]
     Indication: SYSTEMIC LUPUS ERYTHEMATOSUS
     Dosage: 1 IN 28 D, INTRAVENOUS DRIP
     Route: 041
     Dates: start: 20120123
  2. COLCHICINE [Concomitant]
  3. MORPHINE SULFATE [Concomitant]
  4. NUVIGIL [Concomitant]
  5. PLAQUENIL [Concomitant]
  6. VICODIN [Concomitant]
  7. WELLBUTRIN SR [Concomitant]
  8. SAVELLA [Concomitant]
  9. CLONAZEPAM [Concomitant]
  10. ACTONEL [Concomitant]
  11. FISH OIL [Concomitant]
  12. CRANBERRY [Concomitant]
  13. MIRALAX [Concomitant]
  14. FIBER [Concomitant]
  15. RESTASIS [Concomitant]

REACTIONS (8)
  - Disturbance in attention [None]
  - Aphasia [None]
  - Systemic lupus erythematosus [None]
  - Hyperhidrosis [None]
  - Fatigue [None]
  - Influenza like illness [None]
  - Pyrexia [None]
  - Pain [None]
